FAERS Safety Report 5371898-8 (Version None)
Quarter: 2007Q2

REPORT INFORMATION
  Report Type: 
  Country: None (occurrence: None)
  Receive Date: 20070619
  Receipt Date: 20070420
  Transmission Date: 20071010
  Serious: No
  Sender: FDA-Public Use
  Company Number: 2007US000866

PATIENT
  Age: 53 Year
  Sex: Female

DRUGS (4)
  1. VESICARE [Suspect]
     Indication: HYPERTONIC BLADDER
     Dosage: 10 MG, ORAL
     Route: 048
     Dates: start: 20060901
  2. SYNTHROID [Concomitant]
  3. LISINOPRIL [Concomitant]
  4. MULTIVITAMIN [Concomitant]

REACTIONS (2)
  - DYSPEPSIA [None]
  - VISION BLURRED [None]
